FAERS Safety Report 10744677 (Version 1)
Quarter: 2015Q1

REPORT INFORMATION
  Report Type: Spontaneous
  Country: US (occurrence: None)
  Receive Date: 20150126
  Receipt Date: 20150126
  Transmission Date: 20150721
  Serious: No
  Sender: FDA-Public Use
  Company Number: None

PATIENT
  Age: 64 Year
  Sex: Male

DRUGS (1)
  1. HUMIRA [Suspect]
     Active Substance: ADALIMUMAB
     Indication: ILL-DEFINED DISORDER
     Dosage: 40 MG?EVERY OTHER WEK?SQ
     Route: 058
     Dates: start: 20140715, end: 20150107

REACTIONS (2)
  - Hepatic cancer metastatic [None]
  - Lung cancer metastatic [None]

NARRATIVE: CASE EVENT DATE: 20150107
